FAERS Safety Report 7256286-1 (Version None)
Quarter: 2011Q1

REPORT INFORMATION
  Report Type: 
  Country: None (occurrence: None)
  Receive Date: 20110129
  Receipt Date: 20100601
  Transmission Date: 20110831
  Serious: No
  Sender: FDA-Public Use
  Company Number: US-ABBOTT-10P-163-0649024-00

PATIENT
  Sex: Female
  Weight: 90.8 kg

DRUGS (5)
  1. HUMIRA [Suspect]
     Indication: UVEITIS
     Dates: start: 20080101
  2. INDOMETHACIN [Concomitant]
     Indication: INFLAMMATION
  3. LORTIN [Concomitant]
     Indication: HYPERSENSITIVITY
  4. HUMIRA [Suspect]
     Indication: ANKYLOSING SPONDYLITIS
  5. UNKNOWN ACID REDUCERS [Concomitant]
     Indication: GASTRIC DISORDER

REACTIONS (7)
  - INCORRECT DOSE ADMINISTERED [None]
  - INJECTION SITE URTICARIA [None]
  - PYREXIA [None]
  - INJECTION SITE PAIN [None]
  - DEVICE MALFUNCTION [None]
  - NASOPHARYNGITIS [None]
  - COUGH [None]
